FAERS Safety Report 9764319 (Version 2)
Quarter: 2013Q4

REPORT INFORMATION
  Report Type: Spontaneous
  Country: US (occurrence: US)
  Receive Date: 20131217
  Receipt Date: 20131217
  Transmission Date: 20140711
  Serious: No
  Sender: FDA-Public Use
  Company Number: 2012SP000104

PATIENT
  Age: 47 Year
  Sex: Male

DRUGS (2)
  1. VANCOMYCIN [Suspect]
  2. ZYVOX [Suspect]

REACTIONS (1)
  - Abdominal discomfort [Unknown]
